FAERS Safety Report 25640898 (Version 1)
Quarter: 2025Q3

REPORT INFORMATION
  Report Type: Spontaneous
  Country: CN (occurrence: CN)
  Receive Date: 20250804
  Receipt Date: 20250804
  Transmission Date: 20251021
  Serious: Yes (Other)
  Sender: MYLAN
  Company Number: CN-MYLANLABS-2025M1065760

PATIENT
  Age: 32 Year
  Sex: Male

DRUGS (12)
  1. LATANOPROST [Suspect]
     Active Substance: LATANOPROST
     Indication: Glaucoma
  2. LATANOPROST [Suspect]
     Active Substance: LATANOPROST
     Route: 061
  3. LATANOPROST [Suspect]
     Active Substance: LATANOPROST
     Route: 061
  4. LATANOPROST [Suspect]
     Active Substance: LATANOPROST
  5. BRINZOLAMIDE [Suspect]
     Active Substance: BRINZOLAMIDE
     Indication: Glaucoma
  6. BRINZOLAMIDE [Suspect]
     Active Substance: BRINZOLAMIDE
     Route: 061
  7. BRINZOLAMIDE [Suspect]
     Active Substance: BRINZOLAMIDE
     Route: 061
  8. BRINZOLAMIDE [Suspect]
     Active Substance: BRINZOLAMIDE
  9. BRIMONIDINE [Suspect]
     Active Substance: BRIMONIDINE TARTRATE
     Indication: Glaucoma
  10. BRIMONIDINE [Suspect]
     Active Substance: BRIMONIDINE TARTRATE
     Route: 061
  11. BRIMONIDINE [Suspect]
     Active Substance: BRIMONIDINE TARTRATE
     Route: 061
  12. BRIMONIDINE [Suspect]
     Active Substance: BRIMONIDINE TARTRATE

REACTIONS (1)
  - Treatment failure [Unknown]
